FAERS Safety Report 20974222 (Version 2)
Quarter: 2022Q2

REPORT INFORMATION
  Report Type: Spontaneous
  Country: CO (occurrence: CO)
  Receive Date: 20220617
  Receipt Date: 20220622
  Transmission Date: 20220721
  Serious: Yes (Disabling, Other)
  Sender: FDA-Public Use
  Company Number: CO-PFIZER INC-202101775613

PATIENT
  Age: 55 Year
  Sex: Female

DRUGS (4)
  1. ENBREL [Suspect]
     Active Substance: ETANERCEPT
     Indication: Ankylosing spondylitis
     Dosage: 50 MG,EVERY 8 DAYS ONE APLICATION
     Route: 058
     Dates: start: 202101, end: 202111
  2. ENBREL [Suspect]
     Active Substance: ETANERCEPT
     Dosage: 50 MG,EVERY 8 DAYS ONE APLICATION
     Route: 058
     Dates: start: 202112
  3. ENBREL [Suspect]
     Active Substance: ETANERCEPT
     Dosage: 50 MG
     Route: 065
     Dates: start: 202101, end: 202201
  4. ENBREL [Suspect]
     Active Substance: ETANERCEPT
     Dosage: 50 MG, EVERY 8 DAYS
     Route: 058
     Dates: start: 202001

REACTIONS (10)
  - Blindness unilateral [Unknown]
  - Hypokinesia [Unknown]
  - Influenza [Recovering/Resolving]
  - Cough [Recovering/Resolving]
  - Arthralgia [Unknown]
  - Maculopathy [Unknown]
  - Inflammation [Not Recovered/Not Resolved]
  - Visual impairment [Unknown]
  - Ocular hyperaemia [Unknown]
  - Metamorphopsia [Unknown]

NARRATIVE: CASE EVENT DATE: 20210101
